FAERS Safety Report 17998627 (Version 2)
Quarter: 2020Q3

REPORT INFORMATION
  Report Type: Report from Study
  Country: US (occurrence: US)
  Receive Date: 20200709
  Receipt Date: 20200909
  Transmission Date: 20201103
  Serious: Yes (Hospitalization)
  Sender: FDA-Public Use
  Company Number: US-BRISTOL-MYERS SQUIBB COMPANY-BMS-2020-052877

PATIENT
  Age: 15 Year
  Sex: Female
  Weight: 58.9 kg

DRUGS (2)
  1. PREDNISONE [PREDNISONE ACETATE] [Concomitant]
     Active Substance: PREDNISONE ACETATE
     Indication: PRODUCT USED FOR UNKNOWN INDICATION
     Route: 065
  2. ABATACEPT [Suspect]
     Active Substance: ABATACEPT
     Indication: RHEUMATOID ARTHRITIS
     Dosage: UNK, Q2WK
     Route: 042
     Dates: start: 20200701

REACTIONS (5)
  - Illness [Unknown]
  - Off label use [Unknown]
  - Lethargy [Unknown]
  - Skin discolouration [Unknown]
  - Headache [Unknown]

NARRATIVE: CASE EVENT DATE: 20200701
